FAERS Safety Report 9342084 (Version 1)
Quarter: 2013Q2

REPORT INFORMATION
  Report Type: Spontaneous
  Country: US (occurrence: US)
  Receive Date: 20130611
  Receipt Date: 20130611
  Transmission Date: 20140414
  Serious: Yes (Other)
  Sender: FDA-Public Use
  Company Number: US-ASTRAZENECA-2013SE31370

PATIENT
  Age: 39 Year
  Sex: Male
  Weight: 79.4 kg

DRUGS (2)
  1. CRESTOR [Suspect]
     Indication: BLOOD TRIGLYCERIDES INCREASED
     Dosage: SPLIT THE 10MG PILL IN ATTEMPT TO CONSUME 5MG
     Route: 048
     Dates: start: 20130423, end: 20130502
  2. CRESTOR [Suspect]
     Indication: BLOOD CHOLESTEROL INCREASED
     Dosage: SPLIT THE 10MG PILL IN ATTEMPT TO CONSUME 5MG
     Route: 048
     Dates: start: 20130423, end: 20130502

REACTIONS (10)
  - Convulsion [Unknown]
  - Dizziness [Not Recovered/Not Resolved]
  - Yellow skin [Not Recovered/Not Resolved]
  - Asthenia [Not Recovered/Not Resolved]
  - Confusional state [Not Recovered/Not Resolved]
  - Malaise [Not Recovered/Not Resolved]
  - Balance disorder [Not Recovered/Not Resolved]
  - Diarrhoea [Not Recovered/Not Resolved]
  - Activities of daily living impaired [Not Recovered/Not Resolved]
  - Off label use [Not Recovered/Not Resolved]
